FAERS Safety Report 14674692 (Version 1)
Quarter: 2018Q1

REPORT INFORMATION
  Report Type: Spontaneous
  Country: CN (occurrence: CN)
  Receive Date: 20180323
  Receipt Date: 20180323
  Transmission Date: 20180509
  Serious: Yes (Other)
  Sender: FDA-Public Use
  Company Number: CN-BRISTOL-MYERS SQUIBB COMPANY-BMS-2018-023314

PATIENT
  Age: 72 Year
  Sex: Male
  Weight: 72 kg

DRUGS (2)
  1. VORICONAZOLE. [Suspect]
     Active Substance: VORICONAZOLE
     Indication: INFECTION
     Dosage: 200 MG, BID
     Route: 048
     Dates: start: 20171207, end: 20171221
  2. BARACLUDE [Suspect]
     Active Substance: ENTECAVIR
     Indication: VIRAL INFECTION
     Dosage: 0.5 MG, QD
     Route: 048
     Dates: start: 20171207, end: 20171221

REACTIONS (2)
  - Hallucination [Recovering/Resolving]
  - Illusion [Recovering/Resolving]

NARRATIVE: CASE EVENT DATE: 20171221
